FAERS Safety Report 22053845 (Version 1)
Quarter: 2023Q1

REPORT INFORMATION
  Report Type: Spontaneous
  Country: BG (occurrence: BG)
  Receive Date: 20230302
  Receipt Date: 20230302
  Transmission Date: 20230417
  Serious: Yes (Hospitalization)
  Sender: FDA-Public Use
  Company Number: BG-BAYER-2023A023949

PATIENT
  Age: 67 Year
  Sex: Female

DRUGS (3)
  1. ASPIRIN [Suspect]
     Active Substance: ASPIRIN
     Indication: Ischaemic stroke
  2. CIPROFLOXACIN [Suspect]
     Active Substance: CIPROFLOXACIN
     Indication: Ischaemic stroke
  3. CIPROFLOXACIN [Suspect]
     Active Substance: CIPROFLOXACIN
     Indication: Malignant neoplasm progression

REACTIONS (9)
  - Endocarditis [None]
  - Ovarian cancer [None]
  - Ischaemic stroke [None]
  - Acute myocardial infarction [None]
  - Peripheral artery thrombosis [None]
  - Deep vein thrombosis [None]
  - Pulmonary embolism [None]
  - Lymphadenopathy [None]
  - Lymphadenopathy mediastinal [None]
